FAERS Safety Report 7295656-2 (Version None)
Quarter: 2011Q1

REPORT INFORMATION
  Report Type: 
  Country: None (occurrence: None)
  Receive Date: 20110216
  Receipt Date: 20101215
  Transmission Date: 20110831
  Serious: No
  Sender: FDA-Public Use
  Company Number: US-ABBOTT-10P-163-0691666-00

PATIENT
  Sex: Female
  Weight: 72.64 kg

DRUGS (4)
  1. FISH OIL [Concomitant]
     Indication: PRODUCT USED FOR UNKNOWN INDICATION
  2. ASPIRIN [Concomitant]
     Indication: PRODUCT USED FOR UNKNOWN INDICATION
     Dosage: EVERY MORNING
  3. VIT D3 [Concomitant]
     Indication: PRODUCT USED FOR UNKNOWN INDICATION
  4. SIMCOR [Suspect]
     Indication: BLOOD CHOLESTEROL INCREASED
     Dosage: 500MG/UNK OTHER DOSE, DAILY AT NIGHT
     Dates: start: 20100901, end: 20101101

REACTIONS (8)
  - FUNGAL INFECTION [None]
  - FEELING COLD [None]
  - PAIN [None]
  - FLUSHING [None]
  - FEELING HOT [None]
  - NAUSEA [None]
  - CYSTITIS [None]
  - URINARY TRACT INFECTION [None]
